FAERS Safety Report 21670220 (Version 2)
Quarter: 2022Q4

REPORT INFORMATION
  Report Type: Spontaneous
  Country: NL (occurrence: NL)
  Receive Date: 20221201
  Receipt Date: 20221216
  Transmission Date: 20230113
  Serious: Yes (Other)
  Sender: FDA-Public Use
  Company Number: NL-TEVA-2022-NL-2830918

PATIENT
  Age: 44 Year
  Sex: Male

DRUGS (4)
  1. VORICONAZOLE [Suspect]
     Active Substance: VORICONAZOLE
     Indication: Bursitis
     Dosage: 400 MILLIGRAM DAILY;
     Route: 048
     Dates: start: 2020, end: 2020
  2. VORICONAZOLE [Suspect]
     Active Substance: VORICONAZOLE
     Indication: Scedosporium infection
  3. POSACONAZOLE [Suspect]
     Active Substance: POSACONAZOLE
     Indication: Bursitis
     Dosage: 300 MILLIGRAM DAILY; ON DAY-119 AFTER INITIAL PRESENTATION, IT WAS WITHDRAWN
     Route: 065
     Dates: start: 2020
  4. POSACONAZOLE [Suspect]
     Active Substance: POSACONAZOLE
     Indication: Scedosporium infection

REACTIONS (3)
  - Hallucination [Unknown]
  - Insomnia [Unknown]
  - Drug ineffective [Unknown]

NARRATIVE: CASE EVENT DATE: 20200101
